FAERS Safety Report 5408121-1 (Version None)
Quarter: 2007Q3

REPORT INFORMATION
  Report Type: 
  Country: None (occurrence: None)
  Receive Date: 20070808
  Receipt Date: 20070726
  Transmission Date: 20080115
  Serious: Yes (Other)
  Sender: FDA-Public Use
  Company Number: JP-BAYER-200512942GDS

PATIENT
  Age: 66 Year
  Sex: Male
  Weight: 58 kg

DRUGS (7)
  1. TELMISARTAN [Suspect]
     Indication: RENOVASCULAR HYPERTENSION
     Route: 065
     Dates: start: 20031106
  2. FUROSEMIDE [Suspect]
     Indication: RENOVASCULAR HYPERTENSION
     Route: 065
  3. NIFEDIPINE [Suspect]
     Indication: RENOVASCULAR HYPERTENSION
     Route: 065
  4. DOXAZOSIN MESYLATE [Suspect]
     Indication: RENOVASCULAR HYPERTENSION
     Route: 065
  5. GUANABENZ [Suspect]
     Indication: RENOVASCULAR HYPERTENSION
     Route: 065
  6. CARVEDILOL [Suspect]
     Indication: RENOVASCULAR HYPERTENSION
     Route: 065
  7. ANTIBIOTICS [Concomitant]
     Indication: PNEUMONIA

REACTIONS (6)
  - BLOOD CREATININE INCREASED [None]
  - BLOOD PRESSURE SYSTOLIC INCREASED [None]
  - DIZZINESS [None]
  - HYPERTENSION [None]
  - PNEUMONIA [None]
  - URINARY TRACT INFECTION [None]
